FAERS Safety Report 19374762 (Version 1)
Quarter: 2021Q2

REPORT INFORMATION
  Report Type: Spontaneous
  Country: LT (occurrence: LT)
  Receive Date: 20210604
  Receipt Date: 20210604
  Transmission Date: 20210717
  Serious: Yes (Other)
  Sender: FDA-Public Use
  Company Number: LT-TEVA-2021-LT-1919601

PATIENT
  Age: 86 Year
  Sex: Female

DRUGS (4)
  1. BETALOK ZOK [Concomitant]
     Dosage: HALF TAB
  2. TOLTERODINE ACTAVIS [Suspect]
     Active Substance: TOLTERODINE TARTRATE
     Indication: URINARY INCONTINENCE
  3. XARELTO [Concomitant]
     Active Substance: RIVAROXABAN
  4. CAPTOPRIL. [Concomitant]
     Active Substance: CAPTOPRIL

REACTIONS (2)
  - Anal sphincter atony [Unknown]
  - Bladder sphincter atony [Unknown]
